FAERS Safety Report 16897585 (Version 1)
Quarter: 2019Q4

REPORT INFORMATION
  Report Type: Spontaneous
  Country: US (occurrence: US)
  Receive Date: 20191009
  Receipt Date: 20191009
  Transmission Date: 20200122
  Serious: Yes (Hospitalization)
  Sender: FDA-Public Use
  Company Number: US-ROCHE-2424514

PATIENT
  Sex: Female

DRUGS (1)
  1. ACTEMRA [Suspect]
     Active Substance: TOCILIZUMAB
     Indication: RHEUMATOID ARTHRITIS
     Dosage: DOSE: 4 MG/KG?320 MG IN NORMAL SALINE OR 324 MG IN NORMAL SALINE
     Route: 042
     Dates: start: 2013, end: 20171114

REACTIONS (2)
  - Pancreatitis [Unknown]
  - Pneumonia [Unknown]
